FAERS Safety Report 7044894-2 (Version None)
Quarter: 2010Q4

REPORT INFORMATION
  Report Type: 
  Country: None (occurrence: None)
  Receive Date: 20101014
  Receipt Date: 20101014
  Transmission Date: 20110411
  Serious: Yes (Hospitalization)
  Sender: FDA-Public Use
  Company Number: PHHO2008GB04915

PATIENT
  Sex: Male
  Weight: 83.6 kg

DRUGS (7)
  1. ALISKIREN/AMOLODIPINE BESYLATE/HYDROCHLOROTHIAZIDE [Suspect]
     Indication: ESSENTIAL HYPERTENSION
     Dosage: 150 MG
     Route: 048
     Dates: start: 20080311, end: 20080411
  2. RAMIPRIL COMP-RAM+ [Suspect]
     Indication: HYPERTENSION
     Dosage: 5 MG
     Dates: start: 20080311, end: 20080401
  3. AMLODIPINE [Concomitant]
     Indication: ESSENTIAL HYPERTENSION
     Dates: start: 20080212
  4. BETAHISTINE [Concomitant]
     Dates: start: 19970519
  5. SIMVASTATIN [Concomitant]
     Dates: start: 20071214
  6. ASPIRIN [Concomitant]
  7. CLOPIDOGREL [Concomitant]

REACTIONS (8)
  - ACUTE MYOCARDIAL INFARCTION [None]
  - CHEST PAIN [None]
  - DISEASE PROGRESSION [None]
  - HYPERLIPIDAEMIA [None]
  - HYPERTENSION [None]
  - PERCUTANEOUS CORONARY INTERVENTION [None]
  - PLATELET COUNT ABNORMAL [None]
  - STENT PLACEMENT [None]
